FAERS Safety Report 9166288 (Version 1)
Quarter: 2013Q1

REPORT INFORMATION
  Report Type: Report from Study
  Country: US (occurrence: US)
  Receive Date: 20130315
  Receipt Date: 20130315
  Transmission Date: 20140127
  Serious: Yes (Other)
  Sender: FDA-Public Use
  Company Number: US-US-EMD SERONO, INC.-7198571

PATIENT
  Age: 14 None
  Sex: Male
  Weight: 48 kg

DRUGS (10)
  1. SAIZEN [(SOMATROPIN (RDNA ORIGIN) FOR INJECTION)] [Suspect]
     Indication: BODY HEIGHT BELOW NORMAL
     Route: 058
     Dates: start: 20101009
  2. SAIZEN [(SOMATROPIN (RDNA ORIGIN) FOR INJECTION)] [Suspect]
     Dates: start: 201201, end: 201204
  3. SAIZEN [(SOMATROPIN (RDNA ORIGIN) FOR INJECTION)] [Suspect]
     Dates: start: 201204, end: 201211
  4. SAIZEN [(SOMATROPIN (RDNA ORIGIN) FOR INJECTION)] [Suspect]
     Dates: start: 201211
  5. PULMICORT [Concomitant]
     Indication: PRODUCT USED FOR UNKNOWN INDICATION
  6. MIRALAX [Concomitant]
     Indication: PRODUCT USED FOR UNKNOWN INDICATION
     Route: 048
  7. ZOLOFT [Concomitant]
     Indication: PRODUCT USED FOR UNKNOWN INDICATION
     Route: 048
     Dates: start: 201206
  8. ZOLOFT [Concomitant]
     Route: 048
  9. ALBUTEROL [Concomitant]
     Indication: PRODUCT USED FOR UNKNOWN INDICATION
  10. ALBUTEROL [Concomitant]

REACTIONS (20)
  - Cellulitis [Unknown]
  - Kawasaki^s disease [Unknown]
  - Lymphadenopathy [Unknown]
  - Conjunctivitis [Recovered/Resolved]
  - Skin exfoliation [Unknown]
  - Constipation [Unknown]
  - Muscle twitching [Unknown]
  - Hypertension [Unknown]
  - Heart rate increased [Recovered/Resolved]
  - Joint injury [Unknown]
  - Blood glucose increased [Unknown]
  - Gamma-glutamyltransferase increased [Unknown]
  - Blood cholesterol increased [Unknown]
  - Blood triglycerides increased [Unknown]
  - High density lipoprotein decreased [Unknown]
  - Platelet count increased [Unknown]
  - Acne [Unknown]
  - Dry skin [Unknown]
  - Nasopharyngitis [Unknown]
  - Seasonal allergy [Unknown]
